FAERS Safety Report 4795112-7 (Version None)
Quarter: 2005Q4

REPORT INFORMATION
  Report Type: 
  Country: None (occurrence: None)
  Receive Date: 20051006
  Receipt Date: 20041115
  Transmission Date: 20060501
  Serious: Yes (Disabling)
  Sender: FDA-Public Use
  Company Number: 2005-09-1782

PATIENT
  Age: 76 Year
  Sex: Male

DRUGS (3)
  1. INTRON A [Suspect]
     Indication: METASTATIC MALIGNANT MELANOMA
     Dosage: SEE IMAGE
     Dates: start: 20030605, end: 20040201
  2. INTRON A [Suspect]
     Indication: METASTATIC MALIGNANT MELANOMA
     Dosage: SEE IMAGE
     Dates: start: 20030605
  3. INTRON A [Suspect]
     Indication: METASTATIC MALIGNANT MELANOMA
     Dosage: SEE IMAGE
     Dates: start: 20040813

REACTIONS (3)
  - ALVEOLITIS FIBROSING [None]
  - CRYPTOGENIC ORGANIZING PNEUMONIA [None]
  - RASH PRURITIC [None]
